FAERS Safety Report 17215298 (Version 4)
Quarter: 2020Q2

REPORT INFORMATION
  Report Type: Spontaneous
  Country: US (occurrence: US)
  Receive Date: 20191230
  Receipt Date: 20200629
  Transmission Date: 20200713
  Serious: Yes (Hospitalization, Other)
  Sender: FDA-Public Use
  Company Number: US-ABBVIE-19K-163-3206204-00

PATIENT
  Sex: Female

DRUGS (1)
  1. HUMIRA [Suspect]
     Active Substance: ADALIMUMAB
     Indication: HIDRADENITIS
     Route: 058

REACTIONS (5)
  - Hidradenitis [Not Recovered/Not Resolved]
  - Surgery [Recovering/Resolving]
  - Surgery [Recovering/Resolving]
  - Surgery [Unknown]
  - Pain [Unknown]

NARRATIVE: CASE EVENT DATE: 201912
